FAERS Safety Report 5950757-3 (Version None)
Quarter: 2008Q4

REPORT INFORMATION
  Report Type: 
  Country: None (occurrence: None)
  Receive Date: 20081112
  Receipt Date: 20081105
  Transmission Date: 20090506
  Serious: No
  Sender: FDA-Public Use
  Company Number: US-B.I. PHARMACEUTICALS,INC./RIDGEFIELD-2008-BP-15792BP

PATIENT
  Sex: Female
  Weight: 80 kg

DRUGS (13)
  1. SPIRIVA [Suspect]
     Indication: CHRONIC OBSTRUCTIVE PULMONARY DISEASE
     Dosage: 18MCG
     Route: 055
     Dates: start: 20080601
  2. COSOPT [Concomitant]
     Indication: GLAUCOMA
     Route: 047
     Dates: start: 19980101
  3. ALPHAGAN [Concomitant]
     Indication: GLAUCOMA
     Route: 047
     Dates: start: 19980101
  4. DIAMOX [Concomitant]
     Indication: GLAUCOMA
     Dates: start: 19980101
  5. SEQURAL [Concomitant]
  6. OXYCONTIN [Concomitant]
     Dosage: 20MG
  7. OXYCODONE HCL [Concomitant]
  8. CALCIUM [Concomitant]
  9. VITA-LEA [Concomitant]
  10. HERB LAX [Concomitant]
  11. ZANTAC [Concomitant]
  12. CARAFATE [Concomitant]
  13. PROAIR HFA [Concomitant]

REACTIONS (2)
  - DRY MOUTH [None]
  - DYSGEUSIA [None]
